FAERS Safety Report 23912954 (Version 2)
Quarter: 2024Q2

REPORT INFORMATION
  Report Type: Other
  Country: ZA (occurrence: None)
  Receive Date: 20240529
  Receipt Date: 20240605
  Transmission Date: 20240716
  Serious: Yes (Other)
  Sender: FDA-Public Use
  Company Number: ZA-ROCHE-3566899

PATIENT
  Sex: Male

DRUGS (1)
  1. OCREVUS [Suspect]
     Active Substance: OCRELIZUMAB
     Indication: Multiple sclerosis
     Dosage: THEN 600 MG EVERY 6 MONTHS
     Route: 041
     Dates: start: 20220110

REACTIONS (4)
  - Multiple sclerosis [Unknown]
  - Optic neuritis [Unknown]
  - Cerebral atrophy [Unknown]
  - Cerebral ventricle dilatation [Unknown]
